FAERS Safety Report 14939233 (Version 1)
Quarter: 2018Q2

REPORT INFORMATION
  Report Type: Spontaneous
  Country: US (occurrence: US)
  Receive Date: 20180525
  Receipt Date: 20180525
  Transmission Date: 20180711
  Serious: No
  Sender: FDA-Public Use
  Company Number: US-PFIZER INC-2018213050

PATIENT
  Sex: Female

DRUGS (2)
  1. LYRICA [Suspect]
     Active Substance: PREGABALIN
     Indication: FIBROMYALGIA
  2. LYRICA [Suspect]
     Active Substance: PREGABALIN
     Indication: BACK DISORDER
     Dosage: UNK
     Dates: start: 2008

REACTIONS (7)
  - Drug ineffective [Unknown]
  - Insomnia [Unknown]
  - Condition aggravated [Unknown]
  - Anger [Unknown]
  - Peripheral swelling [Unknown]
  - Fibromyalgia [Unknown]
  - Fatigue [Unknown]
